FAERS Safety Report 15949106 (Version 1)
Quarter: 2019Q1

REPORT INFORMATION
  Report Type: Spontaneous
  Country: US (occurrence: US)
  Receive Date: 20190212
  Receipt Date: 20190212
  Transmission Date: 20190417
  Serious: No
  Sender: FDA-Public Use
  Company Number: US-BAYER-2019-029391

PATIENT
  Age: 67 Year
  Sex: Female
  Weight: 124.26 kg

DRUGS (5)
  1. LISINOPRIL. [Concomitant]
     Active Substance: LISINOPRIL
  2. ALEVE [Suspect]
     Active Substance: NAPROXEN SODIUM
  3. PIOGLITAZONE. [Concomitant]
     Active Substance: PIOGLITAZONE
  4. HYDROCHLORIC ACID [Concomitant]
     Active Substance: HYDROCHLORIC ACID
  5. LYRICA [Concomitant]
     Active Substance: PREGABALIN
     Indication: MYOFASCIAL PAIN SYNDROME

REACTIONS (2)
  - Joint swelling [Unknown]
  - Multiple allergies [Unknown]
